FAERS Safety Report 9419109 (Version 1)
Quarter: 2013Q3

REPORT INFORMATION
  Report Type: Spontaneous
  Country: BR (occurrence: BR)
  Receive Date: 20130725
  Receipt Date: 20130725
  Transmission Date: 20140515
  Serious: Yes (Hospitalization)
  Sender: FDA-Public Use
  Company Number: BR-ABBOTT-13P-020-1121363-00

PATIENT
  Age: 52 Year
  Sex: Male
  Weight: 87 kg

DRUGS (4)
  1. HUMIRA [Suspect]
     Indication: PSORIASIS
     Route: 058
  2. HUMIRA [Suspect]
     Indication: ARTHRITIS
  3. OMEPRAZOLE [Concomitant]
     Indication: GASTRIC DISORDER
     Route: 048
  4. FOLIC [Concomitant]
     Indication: VITAMIN SUPPLEMENTATION
     Dosage: 3 TABLETS IN AM + 3 TABLETS IN AFTERNOON, ON FRIDAYS
     Route: 048
     Dates: start: 2008

REACTIONS (2)
  - Depression [Recovering/Resolving]
  - Protein urine present [Unknown]
